FAERS Safety Report 4482366-X (Version None)
Quarter: 2004Q4

REPORT INFORMATION
  Report Type: 
  Country: None (occurrence: None)
  Receive Date: 20041022
  Receipt Date: 20030603
  Transmission Date: 20050328
  Serious: No
  Sender: FDA-Public Use
  Company Number: US-BRISTOL-MYERS SQUIBB COMPANY-12291498

PATIENT
  Age: 47 Year
  Sex: Female
  Weight: 79 kg

DRUGS (2)
  1. BUSPAR [Suspect]
     Indication: ANXIETY
     Dosage: PT FILLED RX ON 29-MAR-2003,(IN F/UP FROM 16-JUN-2003 CONSUMER SAID SHE STARTED END OF 4-03)
     Route: 048
     Dates: start: 20030329, end: 20030424
  2. ENALAPRIL MALEATE [Concomitant]

REACTIONS (9)
  - ANXIETY [None]
  - FLAT AFFECT [None]
  - IMPATIENCE [None]
  - IRRITABILITY [None]
  - LIBIDO INCREASED [None]
  - NERVOUSNESS [None]
  - OVARIAN CYST [None]
  - TREMOR [None]
  - VAGINAL HAEMORRHAGE [None]
